FAERS Safety Report 9059650 (Version 1)
Quarter: 2013Q1

REPORT INFORMATION
  Report Type: Spontaneous
  Country: US (occurrence: None)
  Receive Date: 20130206
  Receipt Date: 20130206
  Transmission Date: 20140127
  Serious: Yes (Hospitalization)
  Sender: FDA-Public Use
  Company Number: None

PATIENT
  Age: 64 Year
  Sex: Male
  Weight: 70.6 kg

DRUGS (4)
  1. ABRAXANE [Suspect]
     Route: 042
     Dates: start: 20121224
  2. OXALIPLATIN [Suspect]
     Route: 042
     Dates: start: 20121224
  3. LEUCOVORIN [Suspect]
     Route: 042
     Dates: start: 20121224, end: 20121226
  4. 5FU [Suspect]
     Dosage: CIV 46HRS
     Dates: start: 20121224, end: 20121226

REACTIONS (2)
  - Presyncope [None]
  - Visual impairment [None]
